FAERS Safety Report 19135706 (Version 1)
Quarter: 2021Q2

REPORT INFORMATION
  Report Type: Spontaneous
  Country: US (occurrence: US)
  Receive Date: 20210414
  Receipt Date: 20210414
  Transmission Date: 20210717
  Serious: Yes (Hospitalization, Other)
  Sender: FDA-Public Use
  Company Number: US-UNITED THERAPEUTICS-UNT-2021-004617

PATIENT
  Age: 74 Year
  Sex: Male

DRUGS (4)
  1. REMODULIN [Suspect]
     Active Substance: TREPROSTINIL
     Dosage: UNK, PUMP RATE OF 0.096ML/HR, CONTINUING
     Route: 058
  2. REMODULIN [Suspect]
     Active Substance: TREPROSTINIL
     Indication: PULMONARY ARTERIAL HYPERTENSION
     Dosage: UNK, CONTINUING
     Route: 058
     Dates: start: 20161126
  3. REMODULIN [Suspect]
     Active Substance: TREPROSTINIL
     Dosage: UNK, CONTINUING
     Route: 058
     Dates: start: 20210202
  4. REMODULIN [Suspect]
     Active Substance: TREPROSTINIL
     Dosage: 0.2464 ?G/KG, CONTINUING, AT RATE 0.094ML/HR
     Route: 058

REACTIONS (5)
  - Fluid retention [Unknown]
  - Dyspnoea [Unknown]
  - Infusion site pain [Unknown]
  - Oxygen saturation decreased [Unknown]
  - Somnolence [Unknown]

NARRATIVE: CASE EVENT DATE: 202103
